FAERS Safety Report 8080977-6 (Version None)
Quarter: 2012Q1

REPORT INFORMATION
  Report Type: 
  Country: None (occurrence: None)
  Receive Date: 20120130
  Receipt Date: 20120124
  Transmission Date: 20120608
  Serious: Yes (Other)
  Sender: FDA-Public Use
  Company Number: JP-MERCK-1201USA03456

PATIENT
  Age: 77 Year
  Sex: Male

DRUGS (2)
  1. JANUVIA [Suspect]
     Indication: TYPE 2 DIABETES MELLITUS
     Route: 048
     Dates: start: 20101009, end: 20111201
  2. BISOPROLOL FUMARATE [Suspect]
     Route: 065
     Dates: end: 20111201

REACTIONS (2)
  - INTERSTITIAL LUNG DISEASE [None]
  - TACHYCARDIA [None]
